FAERS Safety Report 7123633-0 (Version None)
Quarter: 2010Q4

REPORT INFORMATION
  Report Type: 
  Country: None (occurrence: None)
  Receive Date: 20101125
  Receipt Date: 20101115
  Transmission Date: 20110411
  Serious: Yes (Other)
  Sender: FDA-Public Use
  Company Number: US-SANOFI-AVENTIS-2010SA070118

PATIENT
  Sex: Female

DRUGS (2)
  1. MULTAQ [Suspect]
     Indication: ATRIAL FIBRILLATION
     Route: 048
     Dates: start: 20101101
  2. COUMADIN [Concomitant]
     Dosage: 2.5 MG 6 DAYS A WEEK AND 2 MG ONE DAY A WEEK
     Route: 048
     Dates: end: 20101101

REACTIONS (1)
  - INTERNATIONAL NORMALISED RATIO INCREASED [None]
